FAERS Safety Report 10929063 (Version 2)
Quarter: 2015Q2

REPORT INFORMATION
  Report Type: Spontaneous
  Country: US (occurrence: US)
  Receive Date: 20150319
  Receipt Date: 20150524
  Transmission Date: 20150821
  Serious: No
  Sender: FDA-Public Use
  Company Number: US-JNJFOC-20130406200

PATIENT

DRUGS (1)
  1. OROS METHYLPHENIDATE HYDROCHLORIDE [Suspect]
     Active Substance: METHYLPHENIDATE HYDROCHLORIDE
     Indication: ATTENTION DEFICIT/HYPERACTIVITY DISORDER
     Route: 048

REACTIONS (11)
  - Adverse drug reaction [Unknown]
  - Irritability [Unknown]
  - Headache [Unknown]
  - Heart rate increased [Unknown]
  - Tremor [Unknown]
  - Aggression [Unknown]
  - Abdominal pain upper [Unknown]
  - Weight decreased [Unknown]
  - Anxiety [Unknown]
  - Abnormal behaviour [Unknown]
  - Sleep disorder [Unknown]
